FAERS Safety Report 6735288-5 (Version None)
Quarter: 2010Q2

REPORT INFORMATION
  Report Type: 
  Country: None (occurrence: None)
  Receive Date: 20100520
  Receipt Date: 20100520
  Transmission Date: 20101027
  Serious: Yes (Other)
  Sender: FDA-Public Use
  Company Number: None

PATIENT
  Sex: Female
  Weight: 75.4 kg

DRUGS (2)
  1. IRON SUCROSE [Suspect]
     Indication: IRON DEFICIENCY ANAEMIA
     Dosage: 100 MG DAILY X 4 DOSES IV (042)
     Route: 042
     Dates: start: 20090501
  2. IRON SUCROSE [Suspect]
     Indication: IRON DEFICIENCY ANAEMIA
     Dosage: 100 MG DAILY X 4 DOSES IV (042)
     Route: 042
     Dates: start: 20100510

REACTIONS (2)
  - EXTRAVASATION [None]
  - INFUSION SITE DISCOLOURATION [None]
